FAERS Safety Report 13517319 (Version 2)
Quarter: 2017Q2

REPORT INFORMATION
  Report Type: Spontaneous
  Country: DE (occurrence: DE)
  Receive Date: 20170505
  Receipt Date: 20170524
  Transmission Date: 20170830
  Serious: Yes (Other)
  Sender: FDA-Public Use
  Company Number: DE-TEVA-764765GER

PATIENT
  Age: 63 Year
  Sex: Male
  Weight: 92 kg

DRUGS (2)
  1. PEGINTERFERON ALFA-2A [Suspect]
     Active Substance: PEGINTERFERON ALFA-2A
     Indication: CHRONIC HEPATITIS C
     Dosage: 180 MICROGRAM/WEEK
     Route: 065
  2. RIBAVIRIN. [Suspect]
     Active Substance: RIBAVIRIN
     Indication: CHRONIC HEPATITIS C
     Dosage: 1200 MILLIGRAM DAILY;
     Route: 065

REACTIONS (2)
  - Autoimmune hepatitis [Recovered/Resolved]
  - Glomerulonephritis membranous [Recovered/Resolved]
